FAERS Safety Report 4924532-2 (Version None)
Quarter: 2006Q1

REPORT INFORMATION
  Report Type: 
  Country: None (occurrence: None)
  Receive Date: 20060222
  Receipt Date: 20060209
  Transmission Date: 20060701
  Serious: No
  Sender: FDA-Public Use
  Company Number: 2005-135760-NL

PATIENT
  Age: 20 Year
  Sex: Female

DRUGS (2)
  1. MIRTAZAPINE [Suspect]
     Indication: INSOMNIA
     Dosage: 15 MG QD
     Dates: start: 20050112, end: 20050119
  2. VALPROATE SODIUM [Concomitant]

REACTIONS (2)
  - DYSPNOEA [None]
  - WHEEZING [None]
